FAERS Safety Report 16264838 (Version 5)
Quarter: 2019Q3

REPORT INFORMATION
  Report Type: Report from Study
  Country: US (occurrence: US)
  Receive Date: 20190502
  Receipt Date: 20190927
  Transmission Date: 20191004
  Serious: Yes (Other)
  Sender: FDA-Public Use
  Company Number: US-GILEAD-2019-0405285

PATIENT
  Age: 67 Year
  Sex: Female

DRUGS (4)
  1. ORENITRAM [Concomitant]
     Active Substance: TREPROSTINIL
  2. AMBRISENTAN [Suspect]
     Active Substance: AMBRISENTAN
     Indication: PULMONARY HYPERTENSION
     Dosage: 5 MG, QD
     Route: 065
     Dates: start: 20150331
  3. AMBRISENTAN [Suspect]
     Active Substance: AMBRISENTAN
     Dosage: 10 MG, QD
     Route: 048
     Dates: start: 20180131
  4. ADCIRCA [Concomitant]
     Active Substance: TADALAFIL

REACTIONS (11)
  - Dyspnoea exertional [Not Recovered/Not Resolved]
  - Headache [Not Recovered/Not Resolved]
  - Pain [Not Recovered/Not Resolved]
  - Scleroderma [Not Recovered/Not Resolved]
  - Muscle spasms [Unknown]
  - Gastrointestinal disorder [Not Recovered/Not Resolved]
  - Bacterial infection [Unknown]
  - Vomiting [Not Recovered/Not Resolved]
  - Abdominal distension [Unknown]
  - Malaise [Not Recovered/Not Resolved]
  - Fatigue [Not Recovered/Not Resolved]
